FAERS Safety Report 19842324 (Version 3)
Quarter: 2021Q4

REPORT INFORMATION
  Report Type: Report from Study
  Country: US (occurrence: US)
  Receive Date: 20210915
  Receipt Date: 20211007
  Transmission Date: 20220304
  Serious: Yes (Hospitalization, Other)
  Sender: FDA-Public Use
  Company Number: US-SEATTLE GENETICS-2021SGN04031

PATIENT
  Age: 50 Year
  Sex: Female

DRUGS (10)
  1. TUCATINIB [Suspect]
     Active Substance: TUCATINIB
     Indication: Neoplasm
     Dosage: START DATE OF MOST RECENT DOSE (300 MG) OF STUDY DRUG PRIOR TO SAE IS 23/JUL/2021 AT 11.30 A.M. (300
     Route: 042
     Dates: start: 20210625
  2. ADO-TRASTUZUMAB EMTANSINE [Suspect]
     Active Substance: ADO-TRASTUZUMAB EMTANSINE
     Indication: Neoplasm
     Dosage: DATE OF MOST RECENT DOSE (371 MG) OF STUDY DRUG PRIOR TO SAE WAS 23/JUL/2021 AT 9.30 P.M. (371 MG,1
     Route: 048
     Dates: start: 20210625
  3. ZYRTEC [Concomitant]
     Active Substance: CETIRIZINE HYDROCHLORIDE
     Indication: Seasonal allergy
     Dosage: UNK
     Route: 048
     Dates: start: 20100101
  4. TYLENOL EXTRA STRENGTH [Concomitant]
     Active Substance: ACETAMINOPHEN
     Indication: Abdominal pain
     Dosage: UNK
     Route: 048
     Dates: start: 20210501
  5. ALBUTEROL SULFATE [Concomitant]
     Active Substance: ALBUTEROL SULFATE
     Indication: Seasonal allergy
     Dosage: UNK
     Dates: start: 20100101
  6. PROMETHAZINE [Concomitant]
     Active Substance: PROMETHAZINE HYDROCHLORIDE
     Indication: Nausea
     Dosage: UNK
     Route: 048
     Dates: start: 20210701
  7. LIDOCAINE [Concomitant]
     Active Substance: LIDOCAINE
     Indication: Oral pain
     Dosage: UNK
     Route: 048
     Dates: start: 20210707
  8. ALUMINUM HYDROXIDE\MAGNESIUM HYDROXIDE [Concomitant]
     Active Substance: ALUMINUM HYDROXIDE\MAGNESIUM HYDROXIDE
     Indication: Oral pain
     Dosage: UNK
     Route: 048
     Dates: start: 20210707
  9. BENADRYL [Concomitant]
     Active Substance: DIPHENHYDRAMINE HYDROCHLORIDE
     Indication: Oral pain
     Dosage: UNK
     Route: 048
     Dates: start: 20210707
  10. ROCEPHIN [Concomitant]
     Active Substance: CEFTRIAXONE SODIUM

REACTIONS (2)
  - Platelet count decreased [Recovered/Resolved]
  - Vomiting [Recovered/Resolved]

NARRATIVE: CASE EVENT DATE: 20210726
